FAERS Safety Report 7810301-2 (Version None)
Quarter: 2011Q4

REPORT INFORMATION
  Report Type: 
  Country: None (occurrence: None)
  Receive Date: 20111012
  Receipt Date: 20111010
  Transmission Date: 20120403
  Serious: Yes (Death)
  Sender: FDA-Public Use
  Company Number: IT-SANOFI-AVENTIS-2011SA066162

PATIENT
  Age: 90 Year
  Sex: Female

DRUGS (6)
  1. FUROSEMIDE [Concomitant]
     Route: 048
  2. PERINDOPRIL [Concomitant]
     Route: 048
  3. DILTIAZEM HCL [Concomitant]
     Route: 048
  4. PLAVIX [Suspect]
     Route: 048
     Dates: start: 20110531, end: 20110602
  5. METFORMIN HYDROCHLORIDE [Concomitant]
     Route: 048
  6. ALLOPURINOL [Concomitant]
     Route: 048

REACTIONS (7)
  - ABDOMINAL PAIN [None]
  - ILEUS PARALYTIC [None]
  - ANURIA [None]
  - PANCREATITIS ACUTE [None]
  - DIARRHOEA [None]
  - VOMITING [None]
  - HYPOTENSION [None]
